FAERS Safety Report 7544109-2 (Version None)
Quarter: 2011Q2

REPORT INFORMATION
  Report Type: 
  Country: None (occurrence: None)
  Receive Date: 20110613
  Receipt Date: 20051201
  Transmission Date: 20111010
  Serious: Yes (Hospitalization)
  Sender: FDA-Public Use
  Company Number: PHHO2005PH18945

PATIENT
  Sex: Male

DRUGS (5)
  1. NORVASC [Concomitant]
  2. PERSANTIN [Concomitant]
  3. HYDRALAZINE HCL [Concomitant]
  4. IMDUR [Concomitant]
  5. DIOVAN [Suspect]
     Indication: HYPERTENSION
     Dosage: 80 MG, QD
     Route: 048
     Dates: start: 20040101

REACTIONS (1)
  - CEREBROVASCULAR ACCIDENT [None]
